FAERS Safety Report 12405389 (Version 6)
Quarter: 2016Q3

REPORT INFORMATION
  Report Type: Report from Study
  Country: ES (occurrence: ES)
  Receive Date: 20160525
  Receipt Date: 20160913
  Transmission Date: 20161109
  Serious: Yes (Death, Hospitalization)
  Sender: FDA-Public Use
  Company Number: ES-ROCHE-1762111

PATIENT
  Age: 14 Year
  Sex: Female
  Weight: 38 kg

DRUGS (13)
  1. ATEZOLIZUMAB [Suspect]
     Active Substance: ATEZOLIZUMAB
     Dosage: ONCE
     Route: 042
     Dates: start: 20160401
  2. OMEPRAZOLE. [Concomitant]
     Active Substance: OMEPRAZOLE
     Route: 042
     Dates: start: 20160602
  3. DIAZEPAM. [Concomitant]
     Active Substance: DIAZEPAM
     Route: 065
     Dates: start: 20160520, end: 20160520
  4. AZITHROMYCIN ANHYDROUS. [Concomitant]
     Active Substance: AZITHROMYCIN ANHYDROUS
     Route: 065
     Dates: start: 20160826, end: 20160904
  5. ATEZOLIZUMAB [Suspect]
     Active Substance: ATEZOLIZUMAB
     Indication: NEOPLASM RECURRENCE
     Dosage: DATE OF MOST RECENT DOSE PRIOR TO THE EVENT ONSET: 13/MAY/2016
     Route: 042
     Dates: start: 20160401, end: 20160602
  6. BOI K [Concomitant]
     Active Substance: POTASSIUM ASCORBATE
     Route: 065
     Dates: start: 20160520, end: 20160520
  7. POTASION [Concomitant]
     Active Substance: POTASSIUM CHLORIDE
     Indication: HYPOKALAEMIA
     Route: 065
     Dates: start: 20160521, end: 20160522
  8. MORPHINE [Concomitant]
     Active Substance: MORPHINE
     Route: 042
     Dates: start: 20160602
  9. SEPTRIN [Concomitant]
     Active Substance: SULFAMETHOXAZOLE\TRIMETHOPRIM
     Indication: PROPHYLAXIS
  10. OMEPRAZOLE. [Concomitant]
     Active Substance: OMEPRAZOLE
     Route: 065
     Dates: start: 20160518, end: 20160521
  11. OMEPRAZOLE. [Concomitant]
     Active Substance: OMEPRAZOLE
     Route: 065
     Dates: start: 20160518, end: 20160904
  12. POTASION [Concomitant]
     Active Substance: POTASSIUM CHLORIDE
     Route: 065
     Dates: start: 20160520, end: 20160522
  13. LACTULOSE. [Concomitant]
     Active Substance: LACTULOSE
     Indication: CONSTIPATION
     Route: 065
     Dates: start: 20160415, end: 20160428

REACTIONS (2)
  - Cardio-respiratory arrest [Fatal]
  - Superior vena cava syndrome [Recovering/Resolving]

NARRATIVE: CASE EVENT DATE: 20160518
